FAERS Safety Report 20279506 (Version 4)
Quarter: 2022Q3

REPORT INFORMATION
  Report Type: Report from Study
  Country: AR (occurrence: AR)
  Receive Date: 20220103
  Receipt Date: 20220920
  Transmission Date: 20221026
  Serious: Yes (Other)
  Sender: FDA-Public Use
  Company Number: AR-NOVARTISPH-NVSC2021AR300271

PATIENT
  Age: 53 Year
  Sex: Male

DRUGS (1)
  1. COSENTYX [Suspect]
     Active Substance: SECUKINUMAB
     Indication: Axial spondyloarthritis
     Dosage: 150 MG, QMO
     Route: 058
     Dates: start: 20190422

REACTIONS (10)
  - Skull fracture [Unknown]
  - Road traffic accident [Unknown]
  - Lower limb fracture [Unknown]
  - Tibia fracture [Unknown]
  - Fibula fracture [Unknown]
  - COVID-19 [Unknown]
  - Spinal pain [Unknown]
  - Insomnia [Unknown]
  - Intervertebral disc compression [Unknown]
  - Hypoacusis [Unknown]

NARRATIVE: CASE EVENT DATE: 20211124
